FAERS Safety Report 17538047 (Version 2)
Quarter: 2020Q2

REPORT INFORMATION
  Report Type: Spontaneous
  Country: US (occurrence: US)
  Receive Date: 20200313
  Receipt Date: 20200402
  Transmission Date: 20200713
  Serious: No
  Sender: FDA-Public Use
  Company Number: US-AMGEN-USASP2020040012

PATIENT
  Sex: Female

DRUGS (1)
  1. REPATHA [Suspect]
     Active Substance: EVOLOCUMAB
     Indication: PRODUCT USED FOR UNKNOWN INDICATION
     Dosage: UNK, Q2WK
     Route: 065

REACTIONS (5)
  - Dysphagia [Recovering/Resolving]
  - Oropharyngeal pain [Recovering/Resolving]
  - Ear pain [Recovering/Resolving]
  - Mass [Recovering/Resolving]
  - Cough [Unknown]
